FAERS Safety Report 8739629 (Version 2)
Quarter: 2012Q4

REPORT INFORMATION
  Report Type: 
  Country: US (occurrence: US)
  Receive Date: 20120823
  Receipt Date: 20120924
  Transmission Date: 20130627
  Serious: No
  Sender: FDA-Public Use
  Company Number: US-PFIZER INC-2012205991

PATIENT
  Age: 57 Year
  Sex: Female
  Weight: 52.15 kg

DRUGS (5)
  1. CHANTIX [Suspect]
     Indication: SMOKING CESSATION THERAPY
     Dosage: 0.5 mg, daily
     Route: 048
     Dates: start: 2012, end: 2012
  2. CHANTIX [Suspect]
     Dosage: UNK
     Route: 048
     Dates: start: 2012, end: 2012
  3. ABILIFY [Concomitant]
     Indication: DEPRESSION
     Dosage: 2 mg,daily
  4. EFEXOR XR [Concomitant]
     Indication: DEPRESSION
     Dosage: 75 mg, daily
  5. LEVOXYL [Concomitant]
     Indication: HYPOTHYROIDISM
     Dosage: 100 ug, daily

REACTIONS (1)
  - Nightmare [Recovered/Resolved]
